FAERS Safety Report 10549246 (Version 4)
Quarter: 2014Q4

REPORT INFORMATION
  Report Type: Spontaneous
  Country: US (occurrence: US)
  Receive Date: 20141028
  Receipt Date: 20141223
  Transmission Date: 20150529
  Serious: No
  Sender: FDA-Public Use
  Company Number: US-ASTRAZENECA-2014SE81085

PATIENT
  Age: 68 Year
  Sex: Female
  Weight: 47.6 kg

DRUGS (1)
  1. NEXIUM 24HR [Suspect]
     Active Substance: ESOMEPRAZOLE MAGNESIUM
     Indication: DYSPEPSIA
     Route: 048
     Dates: start: 20141016, end: 20141016

REACTIONS (10)
  - Speech disorder [Unknown]
  - Throat tightness [Unknown]
  - Pruritus [Not Recovered/Not Resolved]
  - Erythema [Not Recovered/Not Resolved]
  - Choking sensation [Unknown]
  - Dry mouth [Not Recovered/Not Resolved]
  - Drug ineffective [Unknown]
  - Inflammation [Unknown]
  - Dry throat [Not Recovered/Not Resolved]
  - Drug hypersensitivity [Unknown]

NARRATIVE: CASE EVENT DATE: 20141016
